FAERS Safety Report 17711893 (Version 1)
Quarter: 2020Q2

REPORT INFORMATION
  Report Type: Spontaneous
  Country: CA (occurrence: CA)
  Receive Date: 20200427
  Receipt Date: 20200427
  Transmission Date: 20200714
  Serious: Yes (Other)
  Sender: FDA-Public Use
  Company Number: CA-GILEAD-2020-0461198

PATIENT
  Age: 55 Year
  Sex: Female

DRUGS (1)
  1. GENVOYA [Suspect]
     Active Substance: COBICISTAT\ELVITEGRAVIR\EMTRICITABINE\TENOFOVIR ALAFENAMIDE FUMARATE
     Indication: HIV INFECTION
     Dosage: 1 DOSAGE FORM
     Route: 065

REACTIONS (5)
  - Glomerular filtration rate decreased [Unknown]
  - Renal tubular injury [Unknown]
  - Renal impairment [Unknown]
  - Blood creatinine increased [Unknown]
  - Focal segmental glomerulosclerosis [Unknown]
